FAERS Safety Report 6006583-2 (Version None)
Quarter: 2008Q4

REPORT INFORMATION
  Report Type: 
  Country: None (occurrence: None)
  Receive Date: 20081217
  Receipt Date: 20081210
  Transmission Date: 20090506
  Serious: Yes (Hospitalization)
  Sender: FDA-Public Use
  Company Number: FR-WYE-H07165608

PATIENT

DRUGS (4)
  1. INIPOMP [Suspect]
     Indication: GASTROINTESTINAL HAEMORRHAGE
     Dosage: 40 MG FREQUENCY UNSPECIFIED
     Route: 042
     Dates: start: 20081012, end: 20081014
  2. INIPOMP [Suspect]
     Indication: HAEMATEMESIS
  3. INIPOMP [Suspect]
     Dosage: DOSE AND FREQUENCY UNSPECIFIED
     Route: 048
     Dates: start: 20081014, end: 20081016
  4. INIPOMP [Suspect]

REACTIONS (1)
  - THROMBOCYTOPENIA [None]
